FAERS Safety Report 8257425-6 (Version None)
Quarter: 2012Q2

REPORT INFORMATION
  Report Type: 
  Country: None (occurrence: None)
  Receive Date: 20120403
  Receipt Date: 20120322
  Transmission Date: 20120825
  Serious: Yes (Death, Hospitalization)
  Sender: FDA-Public Use
  Company Number: ES-ROCHE-1038435

PATIENT
  Sex: Female
  Weight: 49 kg

DRUGS (3)
  1. XELODA [Suspect]
     Indication: BREAST CANCER
     Route: 048
     Dates: start: 20110921, end: 20120304
  2. AVASTIN [Suspect]
     Dosage: PERMANENTLY DISCONTINUED
     Route: 042
     Dates: end: 20120304
  3. AVASTIN [Suspect]
     Indication: BREAST CANCER
     Dosage: DATE OF LAST DOSE PRIOR TO SAE, 03 JAN 2012
     Route: 042
     Dates: start: 20110921, end: 20120206

REACTIONS (1)
  - HEPATITIS TOXIC [None]
